FAERS Safety Report 7103020-1 (Version None)
Quarter: 2010Q4

REPORT INFORMATION
  Report Type: 
  Country: None (occurrence: None)
  Receive Date: 20101115
  Receipt Date: 20101105
  Transmission Date: 20110411
  Serious: Yes (Hospitalization)
  Sender: FDA-Public Use
  Company Number: PHHO2010AR13525

PATIENT
  Sex: Male

DRUGS (3)
  1. ACZ885 ACZ+ [Suspect]
     Indication: CHRONIC INFANTILE NEUROLOGICAL CUTANEOUS AND ARTICULAR SYNDROME
     Dosage: EVERY 8 WEEKS
     Route: 058
     Dates: start: 20100729
  2. PREDNISONE [Suspect]
  3. DEXAMETHASONE [Suspect]

REACTIONS (10)
  - COUGH [None]
  - DYSPNOEA [None]
  - HYPERGLYCAEMIA [None]
  - LEUKOCYTOSIS [None]
  - NASOPHARYNGITIS [None]
  - PNEUMONIA [None]
  - PNEUMONITIS [None]
  - PYREXIA [None]
  - RALES [None]
  - TACHYPNOEA [None]
